FAERS Safety Report 5499809-5 (Version None)
Quarter: 2007Q4

REPORT INFORMATION
  Report Type: 
  Country: None (occurrence: None)
  Receive Date: 20071026
  Receipt Date: 20071018
  Transmission Date: 20080405
  Serious: Yes (Other)
  Sender: FDA-Public Use
  Company Number: US-ABBOTT-07P-163-0421334-00

PATIENT
  Age: 36 Year
  Sex: Male

DRUGS (1)
  1. DIVALPROEX SODIUM [Suspect]
     Indication: MOOD SWINGS

REACTIONS (12)
  - ANGINA PECTORIS [None]
  - ANOREXIA [None]
  - FEELING ABNORMAL [None]
  - HAEMATOCHEZIA [None]
  - HYPERHIDROSIS [None]
  - INSOMNIA [None]
  - INTENTIONAL SELF-INJURY [None]
  - MOOD ALTERED [None]
  - MUSCLE TWITCHING [None]
  - PALPITATIONS [None]
  - PRURITUS [None]
  - WOUND HAEMORRHAGE [None]
